FAERS Safety Report 21090448 (Version 1)
Quarter: 2022Q3

REPORT INFORMATION
  Report Type: Spontaneous
  Country: CN (occurrence: CN)
  Receive Date: 20220715
  Receipt Date: 20220715
  Transmission Date: 20221027
  Serious: Yes (Disabling, Other)
  Sender: FDA-Public Use
  Company Number: CN-TAKEDA-2022TUS047022

PATIENT
  Age: 60 Year
  Sex: Female
  Weight: 56 kg

DRUGS (12)
  1. ADCETRIS [Suspect]
     Active Substance: BRENTUXIMAB VEDOTIN
     Indication: Anaplastic large-cell lymphoma
     Dosage: 100 MILLIGRAM, QD
     Route: 041
     Dates: start: 20220624, end: 20220624
  2. DEXAMETHASONE [Suspect]
     Active Substance: DEXAMETHASONE
     Indication: Anaplastic large-cell lymphoma
     Dosage: 15 MILLIGRAM, QD
     Route: 041
     Dates: start: 20220625, end: 20220629
  3. CYCLOPHOSPHAMIDE [Suspect]
     Active Substance: CYCLOPHOSPHAMIDE
     Indication: Anaplastic large-cell lymphoma
     Dosage: 1.1 GRAM, QD
     Route: 041
     Dates: start: 20220625, end: 20220625
  4. VANCOCIN [Suspect]
     Active Substance: VANCOMYCIN HYDROCHLORIDE
     Indication: Anti-infective therapy
     Dosage: 1 GRAM, BID
     Route: 041
     Dates: start: 20220625, end: 20220629
  5. EPIRUBICIN HYDROCHLORIDE [Suspect]
     Active Substance: EPIRUBICIN HYDROCHLORIDE
     Indication: Anaplastic large-cell lymphoma
     Dosage: 90 MILLIGRAM, QD
     Route: 042
     Dates: start: 20220625, end: 20220625
  6. DOXORUBICIN HYDROCHLORIDE [Suspect]
     Active Substance: DOXORUBICIN HYDROCHLORIDE
     Indication: Anaplastic large-cell lymphoma
     Dosage: UNK
     Route: 065
     Dates: start: 20220624
  7. PREDNISONE [Suspect]
     Active Substance: PREDNISONE
     Indication: Anaplastic large-cell lymphoma
     Dosage: UNK
     Route: 065
  8. SODIUM CHLORIDE [Concomitant]
     Active Substance: SODIUM CHLORIDE
     Dosage: 100 MILLILITER, QD
     Route: 041
     Dates: start: 20220624, end: 20220629
  9. SODIUM CHLORIDE [Concomitant]
     Active Substance: SODIUM CHLORIDE
     Dosage: 500 MILLILITER, QD
     Route: 041
     Dates: start: 20220625, end: 20220625
  10. SODIUM CHLORIDE [Concomitant]
     Active Substance: SODIUM CHLORIDE
     Dosage: 250 MILLILITER, QD
     Route: 041
     Dates: start: 20220625, end: 20220629
  11. GLUTATHIONE [Concomitant]
     Active Substance: GLUTATHIONE
     Indication: Prophylaxis
     Dosage: 1.2 GRAM, QD
     Route: 041
     Dates: start: 20220624, end: 20220629
  12. STERILE WATER [Concomitant]
     Active Substance: WATER
     Dosage: 21 MILLILITER, QD
     Route: 041
     Dates: start: 20220624, end: 20220624

REACTIONS (2)
  - Hepatic enzyme increased [Recovering/Resolving]
  - Blood culture positive [Unknown]

NARRATIVE: CASE EVENT DATE: 20220625
